FAERS Safety Report 24867382 (Version 1)
Quarter: 2025Q1

REPORT INFORMATION
  Report Type: Spontaneous
  Country: CN (occurrence: CN)
  Receive Date: 20250121
  Receipt Date: 20250121
  Transmission Date: 20250408
  Serious: Yes (Life-Threatening)
  Sender: BAUSCH AND LOMB
  Company Number: CN-BAUSCH-BL-2025-000679

PATIENT

DRUGS (22)
  1. ACYCLOVIR [Suspect]
     Active Substance: ACYCLOVIR
     Indication: Anti-infective therapy
     Route: 065
  2. ACYCLOVIR [Suspect]
     Active Substance: ACYCLOVIR
     Indication: COVID-19
  3. ACYCLOVIR [Suspect]
     Active Substance: ACYCLOVIR
     Indication: Cytomegalovirus infection
  4. MEROPENEM [Suspect]
     Active Substance: MEROPENEM
     Indication: Anti-infective therapy
     Route: 065
  5. MEROPENEM [Suspect]
     Active Substance: MEROPENEM
     Indication: COVID-19
  6. MEROPENEM [Suspect]
     Active Substance: MEROPENEM
     Indication: Cytomegalovirus infection
  7. SULFAMETHOXAZOLE [Suspect]
     Active Substance: SULFAMETHOXAZOLE
     Indication: Anti-infective therapy
     Route: 065
  8. SULFAMETHOXAZOLE [Suspect]
     Active Substance: SULFAMETHOXAZOLE
     Indication: COVID-19
  9. SULFAMETHOXAZOLE [Suspect]
     Active Substance: SULFAMETHOXAZOLE
     Indication: Cytomegalovirus infection
  10. VORICONAZOLE [Suspect]
     Active Substance: VORICONAZOLE
     Indication: Anti-infective therapy
     Route: 065
  11. VORICONAZOLE [Suspect]
     Active Substance: VORICONAZOLE
     Indication: COVID-19
  12. VORICONAZOLE [Suspect]
     Active Substance: VORICONAZOLE
     Indication: Cytomegalovirus infection
  13. MOLNUPIRAVIR [Suspect]
     Active Substance: MOLNUPIRAVIR
     Indication: Anti-infective therapy
     Route: 065
  14. MOLNUPIRAVIR [Suspect]
     Active Substance: MOLNUPIRAVIR
     Indication: COVID-19
  15. MOLNUPIRAVIR [Suspect]
     Active Substance: MOLNUPIRAVIR
     Indication: Cytomegalovirus infection
  16. VALGANCICLOVIR [Suspect]
     Active Substance: VALGANCICLOVIR
     Indication: Anti-infective therapy
     Route: 065
  17. VALGANCICLOVIR [Suspect]
     Active Substance: VALGANCICLOVIR
     Indication: COVID-19
  18. VALGANCICLOVIR [Suspect]
     Active Substance: VALGANCICLOVIR
     Indication: Cytomegalovirus infection
  19. TOCILIZUMAB [Concomitant]
     Active Substance: TOCILIZUMAB
     Indication: Cytokine release syndrome
  20. DEXAMETHASONE [Concomitant]
     Active Substance: DEXAMETHASONE
     Indication: Cytokine release syndrome
  21. ELTROMBOPAG OLAMINE [Concomitant]
     Active Substance: ELTROMBOPAG OLAMINE
     Indication: Product used for unknown indication
  22. RUXOLITINIB [Concomitant]
     Active Substance: RUXOLITINIB
     Indication: Product used for unknown indication

REACTIONS (1)
  - Therapy non-responder [Unknown]
